FAERS Safety Report 16040624 (Version 1)
Quarter: 2019Q2

REPORT INFORMATION
  Report Type: Spontaneous
  Country: US (occurrence: US)
  Receive Date: 20190305
  Receipt Date: 20190305
  Transmission Date: 20190711
  Serious: Yes (Other)
  Sender: FDA-Public Use
  Company Number: None

PATIENT
  Age: 9 Year
  Sex: Male

DRUGS (1)
  1. OSELTAMVIR 75MG CAP [Suspect]
     Active Substance: OSELTAMIVIR
     Indication: INFLUENZA
     Dates: start: 20190214, end: 20190214

REACTIONS (7)
  - Fear [None]
  - Vomiting [None]
  - Agitation [None]
  - Nightmare [None]
  - Rash [None]
  - Nausea [None]
  - Tremor [None]

NARRATIVE: CASE EVENT DATE: 20190214
